FAERS Safety Report 26131165 (Version 1)
Quarter: 2025Q4

REPORT INFORMATION
  Report Type: Spontaneous
  Country: US (occurrence: US)
  Receive Date: 20251208
  Receipt Date: 20251208
  Transmission Date: 20260117
  Serious: Yes (Hospitalization, Other)
  Sender: SANOFI AVENTIS
  Company Number: US-SA-2025SA363000

PATIENT
  Age: 83 Year
  Sex: Female

DRUGS (1)
  1. DUPIXENT [Suspect]
     Active Substance: DUPILUMAB
     Dosage: UNK

REACTIONS (6)
  - Lung perforation [Unknown]
  - Compression fracture [Unknown]
  - Rib fracture [Unknown]
  - Fall [Unknown]
  - Intestinal mass [Unknown]
  - Blister [Unknown]

NARRATIVE: CASE EVENT DATE: 20250101
